FAERS Safety Report 7588597-4 (Version None)
Quarter: 2011Q3

REPORT INFORMATION
  Report Type: 
  Country: None (occurrence: None)
  Receive Date: 20110705
  Receipt Date: 20110627
  Transmission Date: 20111222
  Serious: Yes (Other)
  Sender: FDA-Public Use
  Company Number: JP-JNJFOC-20110611733

PATIENT
  Sex: Male

DRUGS (4)
  1. LOXOPROFEN SODIUM [Concomitant]
     Route: 065
  2. DICLOFENAC SODIUM [Concomitant]
     Route: 065
  3. FENTANYL-100 [Suspect]
     Indication: TESTICULAR PAIN
     Route: 062
  4. FENTANYL-100 [Suspect]
     Indication: PAIN
     Route: 062

REACTIONS (4)
  - AMNESIA [None]
  - SOMNOLENCE [None]
  - NAUSEA [None]
  - EUPHORIC MOOD [None]
